FAERS Safety Report 8459896-9 (Version None)
Quarter: 2012Q2

REPORT INFORMATION
  Report Type: 
  Country: None (occurrence: None)
  Receive Date: 20120622
  Receipt Date: 20120614
  Transmission Date: 20120825
  Serious: Yes (Hospitalization, Other)
  Sender: FDA-Public Use
  Company Number: PHHY2012FI034149

PATIENT
  Age: 83 Year
  Sex: Female

DRUGS (3)
  1. CLOZAPINE [Suspect]
     Dosage: 25 MG, UNK
  2. BETA BLOCKING AGENTS [Concomitant]
  3. PSYCHIATRIC THERAPY [Concomitant]
     Dosage: UNK UKN, UNK

REACTIONS (9)
  - HEPATIC ENZYME INCREASED [None]
  - ABDOMINAL PAIN [None]
  - ANXIETY [None]
  - ELECTROCARDIOGRAM QT PROLONGED [None]
  - BUNDLE BRANCH BLOCK LEFT [None]
  - BLOOD CREATININE INCREASED [None]
  - CRYING [None]
  - CONFUSIONAL STATE [None]
  - ABNORMAL BEHAVIOUR [None]
